FAERS Safety Report 20605410 (Version 1)
Quarter: 2022Q1

REPORT INFORMATION
  Report Type: Report from Study
  Country: US (occurrence: US)
  Receive Date: 20220317
  Receipt Date: 20220317
  Transmission Date: 20220423
  Serious: Yes (Hospitalization, Other)
  Sender: FDA-Public Use
  Company Number: US-ABBVIE-22K-163-4232367-00

PATIENT
  Age: 76 Year
  Sex: Male

DRUGS (1)
  1. RINVOQ [Suspect]
     Active Substance: UPADACITINIB
     Indication: Rheumatoid arthritis
     Route: 048
     Dates: start: 20210928, end: 20220118

REACTIONS (8)
  - Device related infection [Unknown]
  - Hip arthroplasty [Unknown]
  - Pain in extremity [Unknown]
  - Haemorrhage [Unknown]
  - Muscle strain [Unknown]
  - Tendon injury [Unknown]
  - Gait inability [Unknown]
  - Rheumatoid arthritis [Unknown]

NARRATIVE: CASE EVENT DATE: 20220101
